FAERS Safety Report 9026008 (Version 1)
Quarter: 2012Q4

REPORT INFORMATION
  Report Type: Spontaneous
  Country: US (occurrence: None)
  Receive Date: 20121214
  Receipt Date: 20121214
  Transmission Date: 20130627
  Serious: Yes (Hospitalization)
  Sender: FDA-Public Use
  Company Number: None

PATIENT
  Sex: Male
  Weight: 101.82 kg

DRUGS (18)
  1. CYCLOPHOSPHAMIDE [Suspect]
  2. DOXORUBICIN HYDROCHLORIDE [Suspect]
  3. PREDNISONE [Suspect]
  4. RITUXIMAB [Suspect]
  5. VINCRISTINE SULFATE [Suspect]
  6. LIPITOR [Concomitant]
  7. ACYCLOVIR [Concomitant]
  8. ALLOPURINOL [Concomitant]
  9. AMBIEN [Concomitant]
  10. DOCUSATE [Concomitant]
  11. FLUCONAZOLE [Concomitant]
  12. FUROSEMIDE [Concomitant]
  13. INSULIN GLARGINE [Concomitant]
  14. INSULIN LISPRO [Concomitant]
  15. LEVOFLOXACIN [Concomitant]
  16. LISINOPRIL [Concomitant]
  17. METOPROLOL [Concomitant]
  18. PRILOSEC [Concomitant]

REACTIONS (9)
  - Hyperhidrosis [None]
  - Fall [None]
  - Unresponsive to stimuli [None]
  - Faecal incontinence [None]
  - Anaemia [None]
  - Cardiac enzymes increased [None]
  - Hypotension [None]
  - Deep vein thrombosis [None]
  - Upper gastrointestinal haemorrhage [None]
